FAERS Safety Report 9161356 (Version 2)
Quarter: 2013Q2

REPORT INFORMATION
  Report Type: Spontaneous
  Country: US (occurrence: US)
  Receive Date: 20130313
  Receipt Date: 20130429
  Transmission Date: 20140414
  Serious: No
  Sender: FDA-Public Use
  Company Number: US-PFIZER INC-2013084044

PATIENT
  Age: 73 Year
  Sex: Male
  Weight: 97 kg

DRUGS (3)
  1. LYRICA [Suspect]
     Indication: NEUROPATHY PERIPHERAL
     Dosage: 150 MG, 1X/DAY
     Route: 048
     Dates: start: 201301, end: 201302
  2. LYRICA [Suspect]
     Dosage: 150 MG, 2X/DAY
     Route: 048
     Dates: start: 201302
  3. LYRICA [Suspect]
     Dosage: 150 MG, UNK
     Route: 048
     Dates: end: 201303

REACTIONS (5)
  - Blood cholesterol increased [Unknown]
  - Weight increased [Unknown]
  - Drug ineffective [Unknown]
  - Burning sensation [Unknown]
  - Joint swelling [Unknown]
